FAERS Safety Report 9977483 (Version 2)
Quarter: 2014Q1

REPORT INFORMATION
  Report Type: Report from Study
  Country: US (occurrence: US)
  Receive Date: 20140306
  Receipt Date: 20140306
  Transmission Date: 20141002
  Serious: Yes (Other)
  Sender: FDA-Public Use
  Company Number: US-ABBVIE-13P-163-1162331-00

PATIENT
  Age: 27 Year
  Sex: Male
  Weight: 70.37 kg

DRUGS (6)
  1. HUMIRA [Suspect]
     Indication: CROHN^S DISEASE
     Route: 058
     Dates: start: 20130729, end: 20130729
  2. HUMIRA [Suspect]
     Route: 058
     Dates: start: 20130812, end: 20130812
  3. HUMIRA [Suspect]
     Route: 058
     Dates: start: 20130826, end: 201310
  4. PREDNISONE [Concomitant]
     Dates: start: 20131015
  5. IRON [Concomitant]
     Indication: ANAEMIA
  6. MIRILAX [Concomitant]
     Indication: CONSTIPATION

REACTIONS (2)
  - Drug ineffective [Not Recovered/Not Resolved]
  - Crohn^s disease [Not Recovered/Not Resolved]
